FAERS Safety Report 6235720-X (Version None)
Quarter: 2009Q2

REPORT INFORMATION
  Report Type: 
  Country: None (occurrence: None)
  Receive Date: 20090619
  Receipt Date: 20070605
  Transmission Date: 20091009
  Serious: Yes (Hospitalization, Other)
  Sender: FDA-Public Use
  Company Number: US-ASTRAZENECA-2006UW24595

PATIENT
  Age: 18618 Day
  Sex: Female
  Weight: 57.6 kg

DRUGS (10)
  1. SEROQUEL [Suspect]
     Indication: INSOMNIA
     Route: 048
     Dates: start: 20001001
  2. SEROQUEL [Suspect]
     Dosage: 25-150 MG FLUCTUATING
     Route: 048
     Dates: start: 20040207
  3. ABILIFY [Concomitant]
  4. STELAZINE [Concomitant]
  5. ZYPREXA [Concomitant]
  6. REMERON [Concomitant]
     Route: 065
     Dates: start: 20060719
  7. DARVOCET [Concomitant]
     Dosage: 1 TABLET THREE TIMES A DAY
     Route: 065
     Dates: start: 20020402
  8. XANAX [Concomitant]
     Route: 065
     Dates: start: 20060719
  9. NEURONTIN [Concomitant]
     Dosage: 300-600 MG
     Route: 065
     Dates: start: 20070201
  10. EFFEXOR XR [Concomitant]
     Route: 065
     Dates: start: 20040207

REACTIONS (3)
  - PANCREATIC INSUFFICIENCY [None]
  - PANCREATITIS [None]
  - PANCREATITIS CHRONIC [None]
